FAERS Safety Report 21621240 (Version 1)
Quarter: 2022Q4

REPORT INFORMATION
  Report Type: Spontaneous
  Country: US (occurrence: None)
  Receive Date: 20221118
  Receipt Date: 20221118
  Transmission Date: 20230113
  Serious: No
  Sender: FDA-Public Use
  Company Number: None

PATIENT
  Age: 62 Year
  Sex: Female

DRUGS (1)
  1. TALTZ [Suspect]
     Active Substance: IXEKIZUMAB
     Indication: Psoriasis
     Dosage: FREQUENCY : AS DIRECTED; AT WEEK 12 THEN EVERY 4 WEEKS?
     Route: 058
     Dates: start: 202209

REACTIONS (4)
  - Psoriasis [None]
  - Staphylococcal infection [None]
  - Pustular psoriasis [None]
  - Skin necrosis [None]
